FAERS Safety Report 8652437 (Version 3)
Quarter: 2012Q4

REPORT INFORMATION
  Report Type: 
  Country: US (occurrence: US)
  Receive Date: 20120706
  Receipt Date: 20120924
  Transmission Date: 20130627
  Serious: No
  Sender: FDA-Public Use
  Company Number: US-PFIZER INC-2012158999

PATIENT
  Sex: Female

DRUGS (1)
  1. GABAPENTIN [Suspect]
     Indication: FIBROMYALGIA
     Dosage: 300 mg, 3x/day
     Route: 048

REACTIONS (5)
  - Amnesia [Unknown]
  - Memory impairment [Unknown]
  - Coordination abnormal [Unknown]
  - Fall [Unknown]
  - Contusion [Unknown]
